FAERS Safety Report 22293196 (Version 1)
Quarter: 2023Q2

REPORT INFORMATION
  Report Type: Spontaneous
  Country: US (occurrence: US)
  Receive Date: 20230508
  Receipt Date: 20230508
  Transmission Date: 20230722
  Serious: Yes (Disabling)
  Sender: FDA-Public Use
  Company Number: US-SANOFI-01597095

PATIENT
  Sex: Female

DRUGS (1)
  1. FERRLECIT [Suspect]
     Active Substance: SODIUM FERRIC GLUCONATE COMPLEX
     Dosage: UNK

REACTIONS (11)
  - Loss of personal independence in daily activities [Not Recovered/Not Resolved]
  - Vein collapse [Unknown]
  - Injection site pain [Unknown]
  - Injection site extravasation [Not Recovered/Not Resolved]
  - Muscular weakness [Not Recovered/Not Resolved]
  - Muscle atrophy [Unknown]
  - Skin discolouration [Not Recovered/Not Resolved]
  - Gastric disorder [Recovered/Resolved]
  - Hypotension [Not Recovered/Not Resolved]
  - Phlebitis [Not Recovered/Not Resolved]
  - Pain in extremity [Not Recovered/Not Resolved]
